FAERS Safety Report 15004829 (Version 1)
Quarter: 2018Q2

REPORT INFORMATION
  Report Type: Spontaneous
  Country: JP (occurrence: JP)
  Receive Date: 20180613
  Receipt Date: 20180613
  Transmission Date: 20180711
  Serious: Yes (Other)
  Sender: FDA-Public Use
  Company Number: JP-PFIZER INC-2018232513

PATIENT

DRUGS (2)
  1. SUTENT [Suspect]
     Active Substance: SUNITINIB MALATE
  2. INLYTA [Suspect]
     Active Substance: AXITINIB

REACTIONS (2)
  - Second primary malignancy [Unknown]
  - Breast cancer [Unknown]
